FAERS Safety Report 4367744-1 (Version None)
Quarter: 2004Q2

REPORT INFORMATION
  Report Type: 
  Country: None (occurrence: None)
  Receive Date: 20040527
  Receipt Date: 20030804
  Transmission Date: 20050107
  Serious: Yes (Other)
  Sender: FDA-Public Use
  Company Number: 344143

PATIENT
  Age: 42 Year
  Sex: Female
  Weight: 81.6 kg

DRUGS (4)
  1. LARIAM [Suspect]
     Indication: DRUG USE FOR UNKNOWN INDICATION
     Dosage: 1 DOSE FOR 1 PER WEEK ORAL
     Route: 048
     Dates: start: 20030703, end: 20030731
  2. ZYRTEC [Concomitant]
  3. LIQUIBID (GUAIFENESIN) [Concomitant]
  4. FLONASE [Concomitant]

REACTIONS (4)
  - ANXIETY [None]
  - EMOTIONAL DISORDER [None]
  - INSOMNIA [None]
  - SUICIDAL IDEATION [None]
